FAERS Safety Report 7073821-7 (Version None)
Quarter: 2010Q4

REPORT INFORMATION
  Report Type: 
  Country: None (occurrence: None)
  Receive Date: 20101029
  Receipt Date: 20101027
  Transmission Date: 20110411
  Serious: Yes (Hospitalization)
  Sender: FDA-Public Use
  Company Number: IE-PURDUE-GBR-2010-0007252

PATIENT
  Age: 25 Year
  Sex: Female

DRUGS (5)
  1. NON-PMN MORPHINE SULFATE [Suspect]
     Indication: CATHETER REMOVAL
     Dosage: 150 MG, UNK
     Route: 037
  2. BUPIVACAINE HCL [Suspect]
     Indication: CAESAREAN SECTION
     Dosage: 12 MG, SINGLE
     Route: 037
  3. BUPIVACAINE HCL [Suspect]
     Dosage: 2.5 MG, Q2H
     Route: 037
  4. FENTANYL CITRATE [Suspect]
     Indication: CAESAREAN SECTION
     Dosage: 25 MCG, SINGLE
     Route: 037
  5. FENTANYL CITRATE [Suspect]
     Dosage: 25 MCG, Q2H
     Route: 037

REACTIONS (2)
  - DRUG EXPOSURE DURING PREGNANCY [None]
  - MENINGITIS HERPES [None]
